FAERS Safety Report 5013707-2 (Version None)
Quarter: 2006Q2

REPORT INFORMATION
  Report Type: 
  Country: None (occurrence: None)
  Receive Date: 20060526
  Receipt Date: 20060526
  Transmission Date: 20061013
  Serious: Yes (Other)
  Sender: FDA-Public Use
  Company Number: None

PATIENT
  Age: 6 Year
  Sex: Male
  Weight: 60 kg

DRUGS (1)
  1. VICKIE'S HEAD LICE ALTERNATIVE C TERRENA@VICKIEAREMEDIES.COM [Suspect]

REACTIONS (6)
  - ACCIDENTAL EXPOSURE [None]
  - ELECTROLYTE IMBALANCE [None]
  - HYPOGLYCAEMIA [None]
  - MEDICATION ERROR [None]
  - NAUSEA [None]
  - VOMITING [None]
